FAERS Safety Report 12944446 (Version 1)
Quarter: 2016Q4

REPORT INFORMATION
  Report Type: Spontaneous
  Country: US (occurrence: US)
  Receive Date: 20161115
  Receipt Date: 20161115
  Transmission Date: 20170207
  Serious: Yes (Hospitalization)
  Sender: FDA-Public Use
  Company Number: None

PATIENT
  Age: 67 Year
  Sex: Female
  Weight: 62.4 kg

DRUGS (1)
  1. ERBITUX [Suspect]
     Active Substance: CETUXIMAB
     Dates: end: 20161111

REACTIONS (7)
  - Tachycardia [None]
  - Rash [None]
  - Wheezing [None]
  - Respiratory distress [None]
  - Dyspnoea [None]
  - Tachypnoea [None]
  - Urticaria [None]

NARRATIVE: CASE EVENT DATE: 20161111
